FAERS Safety Report 11540589 (Version 1)
Quarter: 2015Q3

REPORT INFORMATION
  Report Type: Spontaneous
  Country: US (occurrence: US)
  Receive Date: 20150923
  Receipt Date: 20150923
  Transmission Date: 20151125
  Serious: No
  Sender: FDA-Public Use
  Company Number: US-BEH-2015050563

PATIENT
  Sex: Female
  Weight: 78 kg

DRUGS (6)
  1. SODIUM BICARB [Concomitant]
     Route: 048
  2. ADVIL [Concomitant]
     Active Substance: IBUPROFEN
     Route: 048
  3. PROTONIX DR [Concomitant]
     Route: 048
  4. ADCIRCA [Concomitant]
     Active Substance: TADALAFIL
     Route: 048
  5. PRIVIGEN [Suspect]
     Active Substance: HUMAN IMMUNOGLOBULIN G
     Indication: IMMUNODEFICIENCY COMMON VARIABLE
     Route: 042
  6. VITAMIN D2 [Concomitant]
     Active Substance: ERGOCALCIFEROL
     Route: 048

REACTIONS (1)
  - Headache [Recovered/Resolved]
